FAERS Safety Report 12713739 (Version 1)
Quarter: 2016Q3

REPORT INFORMATION
  Report Type: Spontaneous
  Country: US (occurrence: US)
  Receive Date: 20160904
  Receipt Date: 20160904
  Transmission Date: 20161109
  Serious: No
  Sender: FDA-Public Use
  Company Number: US-JNJFOC-20160826994

PATIENT
  Age: 73 Year
  Sex: Female
  Weight: 48.54 kg

DRUGS (6)
  1. ESTROGEN [Concomitant]
     Active Substance: ESTRONE\SUS SCROFA OVARY
     Indication: PRODUCT USED FOR UNKNOWN INDICATION
     Dosage: LOW DOSE
     Route: 065
  2. BENADRYL ALLERGY DYE-FREE LIQUID GELS [Concomitant]
     Indication: HYPERSENSITIVITY
     Route: 065
  3. BENADRYL ALLERGY DYE-FREE LIQUID GELS [Concomitant]
     Indication: PRURITUS
     Route: 065
  4. LORAZEPAM. [Concomitant]
     Active Substance: LORAZEPAM
     Indication: SLEEP DISORDER THERAPY
     Dosage: AT NIGHT
     Route: 065
  5. ZYRTEC [Suspect]
     Active Substance: CETIRIZINE HYDROCHLORIDE
     Indication: MULTIPLE ALLERGIES
     Dosage: EVERY NIGHT (NIGHTLY)
     Route: 048
  6. ZYRTEC [Suspect]
     Active Substance: CETIRIZINE HYDROCHLORIDE
     Indication: PRURITUS
     Dosage: EVERY NIGHT (NIGHTLY)
     Route: 048

REACTIONS (2)
  - Drug ineffective [Recovering/Resolving]
  - Dysphonia [Recovering/Resolving]
